FAERS Safety Report 25438028 (Version 1)
Quarter: 2025Q2

REPORT INFORMATION
  Report Type: Spontaneous
  Country: US (occurrence: US)
  Receive Date: 20250616
  Receipt Date: 20250616
  Transmission Date: 20250716
  Serious: No
  Sender: AMNEAL
  Company Number: US-AMNEAL PHARMACEUTICALS-2025-AMRX-00983

PATIENT
  Sex: Female

DRUGS (1)
  1. LISDEXAMFETAMINE DIMESYLATE [Suspect]
     Active Substance: LISDEXAMFETAMINE DIMESYLATE
     Indication: Product used for unknown indication
     Route: 048

REACTIONS (7)
  - Autonomic nervous system imbalance [Unknown]
  - Brain fog [Unknown]
  - Disturbance in attention [Unknown]
  - Feeling jittery [Unknown]
  - Palpitations [Unknown]
  - Depression [Unknown]
  - Product substitution issue [Unknown]
